FAERS Safety Report 5543945-1 (Version None)
Quarter: 2007Q4

REPORT INFORMATION
  Report Type: 
  Country: None (occurrence: None)
  Receive Date: 20071210
  Receipt Date: 20070626
  Transmission Date: 20080405
  Serious: No
  Sender: FDA-Public Use
  Company Number: US-AMGEN-KDC231272

PATIENT
  Sex: Female

DRUGS (6)
  1. ENBREL [Suspect]
     Indication: PSORIASIS
     Route: 058
     Dates: start: 20060101
  2. BENIDIPINE HYDROCHLORIDE [Concomitant]
  3. PREMARIN [Concomitant]
  4. FOSINOPRIL SODIUM [Concomitant]
  5. INDOCIN [Concomitant]
  6. FLEXERIL [Concomitant]

REACTIONS (1)
  - INJECTION SITE IRRITATION [None]
